FAERS Safety Report 8381102-4 (Version None)
Quarter: 2012Q2

REPORT INFORMATION
  Report Type: 
  Country: None (occurrence: None)
  Receive Date: 20120523
  Receipt Date: 20120510
  Transmission Date: 20120825
  Serious: No
  Sender: FDA-Public Use
  Company Number: US-PFIZER INC-2012078667

PATIENT
  Sex: Female
  Weight: 58 kg

DRUGS (1)
  1. MEDROXYPROGESTERONE ACETATE [Suspect]
     Indication: CONTRACEPTION
     Dosage: 150 MG, EVERY 12WEEKS
     Route: 030
     Dates: start: 20120201

REACTIONS (2)
  - UNINTENDED PREGNANCY [None]
  - INAPPROPRIATE SCHEDULE OF DRUG ADMINISTRATION [None]
